FAERS Safety Report 5362083-4 (Version None)
Quarter: 2007Q2

REPORT INFORMATION
  Report Type: 
  Country: None (occurrence: None)
  Receive Date: 20070612
  Receipt Date: 20070601
  Transmission Date: 20071010
  Serious: Yes (Death)
  Sender: FDA-Public Use
  Company Number: 2007-01690

PATIENT

DRUGS (1)
  1. VELCADE [Suspect]
     Indication: LEUKAEMIA PLASMACYTIC

REACTIONS (7)
  - DIARRHOEA [None]
  - DISEASE PROGRESSION [None]
  - HAEMATOTOXICITY [None]
  - INFECTION [None]
  - NAUSEA [None]
  - NEUROTOXICITY [None]
  - RASH [None]
